FAERS Safety Report 12133915 (Version 3)
Quarter: 2016Q1

REPORT INFORMATION
  Report Type: Spontaneous
  Country: US (occurrence: US)
  Receive Date: 20160301
  Receipt Date: 20160314
  Transmission Date: 20160526
  Serious: Yes (Hospitalization)
  Sender: FDA-Public Use
  Company Number: PHEH2016US004125

PATIENT
  Age: 56 Year
  Sex: Female
  Weight: 99.32 kg

DRUGS (1)
  1. ENTRESTO [Suspect]
     Active Substance: SACUBITRIL\VALSARTAN
     Indication: CARDIAC FAILURE CHRONIC
     Dosage: 200 MG, BID
     Route: 048
     Dates: start: 20151102, end: 20160215

REACTIONS (5)
  - Dyspnoea [Unknown]
  - Angioedema [Unknown]
  - Swollen tongue [Recovered/Resolved]
  - Local swelling [Recovered/Resolved]
  - Pharyngeal oedema [Recovered/Resolved]

NARRATIVE: CASE EVENT DATE: 20160215
